FAERS Safety Report 9014336 (Version 3)
Quarter: 2017Q3

REPORT INFORMATION
  Report Type: Spontaneous
  Country: US (occurrence: US)
  Receive Date: 20130115
  Receipt Date: 20170901
  Transmission Date: 20171128
  Serious: Yes (Other)
  Sender: FDA-Public Use
  Company Number: US-PFIZER INC-2013013082

PATIENT
  Age: 56 Year
  Sex: Female
  Weight: 50.8 kg

DRUGS (3)
  1. LYRICA [Suspect]
     Active Substance: PREGABALIN
     Dosage: 50 MG, 1X/DAY
     Route: 048
  2. LYRICA [Suspect]
     Active Substance: PREGABALIN
     Dosage: 150MG IN THE MORNING AND 100MG IN THE EVENING
     Dates: start: 201311
  3. LYRICA [Suspect]
     Active Substance: PREGABALIN
     Indication: NEURALGIA
     Dosage: 50 MG, 1X/DAY
     Route: 048
     Dates: start: 20121230

REACTIONS (23)
  - Alopecia [Not Recovered/Not Resolved]
  - Weight increased [Not Recovered/Not Resolved]
  - Abdominal pain upper [Not Recovered/Not Resolved]
  - Dizziness [Recovering/Resolving]
  - Agitation [Unknown]
  - Fluid retention [Not Recovered/Not Resolved]
  - Feeling abnormal [Unknown]
  - Suicidal ideation [Unknown]
  - Feeling jittery [Recovering/Resolving]
  - Crying [Unknown]
  - Drug ineffective [Unknown]
  - Intentional product misuse [Unknown]
  - Abdominal distension [Not Recovered/Not Resolved]
  - Gastric disorder [Not Recovered/Not Resolved]
  - Malaise [Unknown]
  - Depressed mood [Unknown]
  - Disturbance in attention [Unknown]
  - Cognitive disorder [Unknown]
  - Hyperhidrosis [Unknown]
  - Insomnia [Unknown]
  - Pain [Unknown]
  - Negative thoughts [Unknown]
  - Drug withdrawal syndrome [Unknown]

NARRATIVE: CASE EVENT DATE: 20121230
